FAERS Safety Report 6811213-3 (Version None)
Quarter: 2010Q2

REPORT INFORMATION
  Report Type: 
  Country: None (occurrence: None)
  Receive Date: 20100629
  Receipt Date: 20100629
  Transmission Date: 20101027
  Serious: Yes (Hospitalization)
  Sender: FDA-Public Use
  Company Number: None

PATIENT
  Age: 66 Year
  Sex: Female
  Weight: 145.151 kg

DRUGS (1)
  1. JANUMET [Suspect]
     Indication: BLOOD GLUCOSE ABNORMAL
     Dosage: DAILY AM PM
     Dates: start: 20080501, end: 20080601

REACTIONS (4)
  - BURNS SECOND DEGREE [None]
  - CELLULITIS [None]
  - RENAL FAILURE [None]
  - VASCULITIS [None]
